FAERS Safety Report 15251307 (Version 1)
Quarter: 2018Q3

REPORT INFORMATION
  Report Type: Spontaneous
  Country: CN (occurrence: CN)
  Receive Date: 20180807
  Receipt Date: 20180807
  Transmission Date: 20181010
  Serious: Yes (Other)
  Sender: FDA-Public Use
  Company Number: CN-ASTRAZENECA-2018SE98288

PATIENT
  Sex: Female
  Weight: 45 kg

DRUGS (4)
  1. ETORICOXIB. [Concomitant]
     Active Substance: ETORICOXIB
     Indication: GOUTY ARTHRITIS
     Route: 048
     Dates: start: 20180502, end: 20180503
  2. OMEPRAZOLE MAGNESIUM. [Suspect]
     Active Substance: OMEPRAZOLE MAGNESIUM
     Indication: ABDOMINAL DISCOMFORT
     Route: 048
     Dates: start: 20180428, end: 20180609
  3. METHYLPREDNISOLONE. [Suspect]
     Active Substance: METHYLPREDNISOLONE
     Indication: GOUTY ARTHRITIS
     Route: 048
     Dates: start: 20180504, end: 20180608
  4. METHYLPREDNISOLONE. [Suspect]
     Active Substance: METHYLPREDNISOLONE
     Indication: GOUTY ARTHRITIS
     Route: 048
     Dates: start: 20180428, end: 20180504

REACTIONS (1)
  - Gastrointestinal haemorrhage [Recovering/Resolving]
